FAERS Safety Report 18473801 (Version 4)
Quarter: 2021Q2

REPORT INFORMATION
  Report Type: Report from Study
  Country: US (occurrence: US)
  Receive Date: 20201106
  Receipt Date: 20210426
  Transmission Date: 20210717
  Serious: Yes (Other)
  Sender: FDA-Public Use
  Company Number: US-BIOVITRUM-2020US3598

PATIENT
  Age: 35 Year
  Sex: Female

DRUGS (1)
  1. KINERET [Suspect]
     Active Substance: ANAKINRA
     Indication: CRYOPYRIN ASSOCIATED PERIODIC SYNDROME
     Route: 058
     Dates: start: 20190430

REACTIONS (14)
  - Nausea [Unknown]
  - White blood cell count decreased [Unknown]
  - Hypophagia [Unknown]
  - Injection site erythema [Unknown]
  - Illness [Recovering/Resolving]
  - Injection site pruritus [Unknown]
  - Dizziness [Unknown]
  - Injection site bruising [Unknown]
  - Product dose omission issue [Unknown]
  - Asthenia [Unknown]
  - Off label use [Unknown]
  - COVID-19 [Unknown]
  - Carpal tunnel syndrome [Unknown]
  - Eosinophil count increased [Recovering/Resolving]

NARRATIVE: CASE EVENT DATE: 20190430
